FAERS Safety Report 23029729 (Version 3)
Quarter: 2023Q4

REPORT INFORMATION
  Report Type: Report from Study
  Country: CA (occurrence: CA)
  Receive Date: 20231004
  Receipt Date: 20231026
  Transmission Date: 20240110
  Serious: Yes (Other)
  Sender: FDA-Public Use
  Company Number: CA-JNJFOC-20230971410

PATIENT
  Age: 10 Year
  Sex: Male
  Weight: 67 kg

DRUGS (2)
  1. REMICADE [Suspect]
     Active Substance: INFLIXIMAB
     Indication: Crohn^s disease
     Route: 042
     Dates: start: 20180330
  2. REMICADE [Suspect]
     Active Substance: INFLIXIMAB
     Dosage: ON 08-SEP-2023, THE PATIENT RECEIVED 100 MG STAT DOSE
     Route: 042
     Dates: end: 20231017

REACTIONS (5)
  - Crohn^s disease [Not Recovered/Not Resolved]
  - Drug level abnormal [Unknown]
  - Influenza like illness [Recovering/Resolving]
  - Secretion discharge [Unknown]
  - Off label use [Unknown]

NARRATIVE: CASE EVENT DATE: 20180330
